FAERS Safety Report 14091475 (Version 1)
Quarter: 2017Q4

REPORT INFORMATION
  Report Type: Spontaneous
  Country: DE (occurrence: DE)
  Receive Date: 20171016
  Receipt Date: 20171016
  Transmission Date: 20180321
  Serious: Yes (Other)
  Sender: FDA-Public Use
  Company Number: DE-009507513-1710DEU003691

PATIENT
  Sex: Male

DRUGS (2)
  1. CANDESARTAN. [Concomitant]
     Active Substance: CANDESARTAN
  2. ATOZET [Suspect]
     Active Substance: ATORVASTATIN CALCIUM\EZETIMIBE
     Dosage: UNK, STRENGTH 10/40 (UNIT NOT PROVIDED)
     Route: 048

REACTIONS (5)
  - Blood creatine phosphokinase increased [Unknown]
  - Lipids decreased [Unknown]
  - Epilepsy [Unknown]
  - Syncope [Unknown]
  - Weight decreased [Unknown]

NARRATIVE: CASE EVENT DATE: 20170922
